FAERS Safety Report 5471844-2 (Version None)
Quarter: 2007Q3

REPORT INFORMATION
  Report Type: 
  Country: None (occurrence: None)
  Receive Date: 20070928
  Receipt Date: 20070626
  Transmission Date: 20080115
  Serious: No
  Sender: FDA-Public Use
  Company Number: US-BRISTOL-MYERS SQUIBB COMPANY-13825781

PATIENT
  Age: 50 Year
  Sex: Male
  Weight: 140 kg

DRUGS (7)
  1. DEFINITY [Suspect]
     Indication: ECHOCARDIOGRAM
     Route: 040
     Dates: start: 20070625
  2. SODIUM CHLORIDE [Concomitant]
     Indication: ECHOCARDIOGRAM
     Route: 040
     Dates: start: 20070625
  3. DOBUTAMINE HCL [Concomitant]
     Indication: CARDIAC STRESS TEST
     Route: 042
  4. ATENOLOL [Concomitant]
  5. PRILOSEC [Concomitant]
  6. HYDROCHLOROTHIAZIDE [Concomitant]
  7. POTASSIUM CHLORIDE [Concomitant]

REACTIONS (2)
  - BACK PAIN [None]
  - TREMOR [None]
